FAERS Safety Report 6355132-8 (Version None)
Quarter: 2009Q3

REPORT INFORMATION
  Report Type: 
  Country: None (occurrence: None)
  Receive Date: 20090914
  Receipt Date: 20090902
  Transmission Date: 20100115
  Serious: Yes (Hospitalization)
  Sender: FDA-Public Use
  Company Number: DE-ELI_LILLY_AND_COMPANY-DE200907000607

PATIENT
  Sex: Female
  Weight: 79 kg

DRUGS (5)
  1. SOMATROPIN [Suspect]
     Dosage: 0.2 G, DAILY (1/D)
     Route: 065
     Dates: start: 20010518, end: 20081001
  2. HYDROCORTISONE [Concomitant]
     Indication: HYPOPITUITARISM
     Dosage: 2 X 10
     Route: 065
     Dates: start: 19990101
  3. LEVOTHYROXINE SODIUM [Concomitant]
     Indication: HYPOPITUITARISM
     Dosage: 75 UG, DAILY (1/D)
     Route: 065
     Dates: start: 19990101
  4. CARVEDILOL [Concomitant]
     Indication: HYPERTENSION
     Dosage: 25 MG, DAILY (1/D)
     Route: 065
     Dates: start: 19990101
  5. DIOVAN HCT [Concomitant]
     Indication: HYPERTENSION
     Dosage: 80/12.5 X 1, UNKNOWN
     Route: 065
     Dates: start: 19990101

REACTIONS (1)
  - DISEASE PROGRESSION [None]
